FAERS Safety Report 7682859 (Version 2)
Quarter: 2013Q1

REPORT INFORMATION
  Report Type: Spontaneous
  Country: GB (occurrence: GB)
  Receive Date: 20101124
  Receipt Date: 20130111
  Transmission Date: 20140127
  Serious: Yes (Hospitalization)
  Sender: FDA-Public Use
  Company Number: GB-BAUSCH-2010BL006416

PATIENT
  Age: 48 Year
  Sex: Female
  Weight: 66 kg

DRUGS (10)
  1. DEXAMETHASONE [Suspect]
     Indication: PLASMA CELL MYELOMA
     Route: 048
     Dates: start: 20100730, end: 20100921
  2. BORTEZOMIB [Suspect]
     Indication: PLASMA CELL MYELOMA
     Dates: start: 20100730, end: 20100921
  3. NO DRUG NAME [Concomitant]
     Indication: HEPATITIS
  4. NO DRUG NAME [Concomitant]
  5. NO DRUG NAME [Concomitant]
  6. NO DRUG NAME [Concomitant]
     Indication: HEPATITIS
  7. NO DRUG NAME [Concomitant]
     Indication: PROPHYLAXIS
  8. NO DRUG NAME [Concomitant]
     Indication: PAIN
  9. NO DRUG NAME [Concomitant]
  10. NO DRUG NAME [Concomitant]

REACTIONS (2)
  - Neutropenic sepsis [Recovered/Resolved]
  - Constipation [Not Recovered/Not Resolved]
